FAERS Safety Report 14217275 (Version 2)
Quarter: 2020Q4

REPORT INFORMATION
  Report Type: Other
  Country: US (occurrence: US)
  Receive Date: 20171123
  Receipt Date: 20201224
  Transmission Date: 20210113
  Serious: No
  Sender: FDA-Public Use
  Company Number: US-ROCHE-2026938

PATIENT
  Sex: Female
  Weight: 77.18 kg

DRUGS (5)
  1. KLONOPIN [Concomitant]
     Active Substance: CLONAZEPAM
  2. ATIVAN [Concomitant]
     Active Substance: LORAZEPAM
  3. PROPRANOLOL [Concomitant]
     Active Substance: PROPRANOLOL HYDROCHLORIDE
  4. TRAMADOL. [Concomitant]
     Active Substance: TRAMADOL
  5. OCREVUS [Suspect]
     Active Substance: OCRELIZUMAB
     Indication: RELAPSING MULTIPLE SCLEROSIS
     Dosage: THEN 600 MG ONCE IN 6 MONTHS
     Route: 042
     Dates: start: 201705

REACTIONS (2)
  - Fatigue [Not Recovered/Not Resolved]
  - Drug ineffective [Unknown]
